FAERS Safety Report 6999596-5 (Version None)
Quarter: 2010Q3

REPORT INFORMATION
  Report Type: 
  Country: None (occurrence: None)
  Receive Date: 20100920
  Receipt Date: 20100726
  Transmission Date: 20110219
  Serious: No
  Sender: FDA-Public Use
  Company Number: US-ASTRAZENECA-2010SE34834

PATIENT
  Age: 68 Year
  Sex: Female
  Weight: 81.6 kg

DRUGS (4)
  1. SEROQUEL [Suspect]
     Indication: DEPRESSION
     Dosage: SEROQUEL 200 MG TABLETS- 1/2 TABLET AT DINNER, AND 2 TABLETS AT BEDTIME.
     Route: 048
     Dates: start: 20070101
  2. SEROQUEL [Suspect]
     Indication: BIPOLAR DISORDER
     Dosage: SEROQUEL 200 MG TABLETS- 1/2 TABLET AT DINNER, AND 2 TABLETS AT BEDTIME.
     Route: 048
     Dates: start: 20070101
  3. SEROQUEL [Suspect]
     Route: 048
  4. SEROQUEL [Suspect]
     Route: 048

REACTIONS (7)
  - ARTHRALGIA [None]
  - ARTHRITIS [None]
  - DECREASED APPETITE [None]
  - DRUG DOSE OMISSION [None]
  - HOT FLUSH [None]
  - HYPERCHOLESTEROLAEMIA [None]
  - INSOMNIA [None]
